FAERS Safety Report 9283071 (Version 1)
Quarter: 2013Q2

REPORT INFORMATION
  Report Type: Spontaneous
  Country: US (occurrence: US)
  Receive Date: 20130510
  Receipt Date: 20130510
  Transmission Date: 20140414
  Serious: No
  Sender: FDA-Public Use
  Company Number: US-GLAXOSMITHKLINE-A0978428A

PATIENT
  Age: 76 Year
  Sex: Female

DRUGS (10)
  1. TYKERB [Suspect]
     Indication: BRAIN NEOPLASM MALIGNANT
     Dosage: 1250MG AT NIGHT
     Route: 048
     Dates: start: 20120514
  2. IBUPROFEN [Concomitant]
  3. PROZAC [Concomitant]
  4. AMLODIPINE [Concomitant]
  5. VALIUM [Concomitant]
  6. MAGNESIUM [Concomitant]
  7. PRILOSEC [Concomitant]
  8. DULCOLAX [Concomitant]
  9. SENNA [Concomitant]
  10. EXEMESTANE [Concomitant]

REACTIONS (10)
  - Nausea [Unknown]
  - Diarrhoea [Not Recovered/Not Resolved]
  - Fatigue [Unknown]
  - Headache [Unknown]
  - Dizziness [Unknown]
  - Asthenia [Unknown]
  - Gait disturbance [Unknown]
  - Dry skin [Not Recovered/Not Resolved]
  - Skin fissures [Not Recovered/Not Resolved]
  - Abdominal pain [Not Recovered/Not Resolved]
